FAERS Safety Report 23023892 (Version 1)
Quarter: 2023Q4

REPORT INFORMATION
  Report Type: Spontaneous
  Country: DE (occurrence: DE)
  Receive Date: 20231003
  Receipt Date: 20231003
  Transmission Date: 20240110
  Serious: Yes (Other)
  Sender: FDA-Public Use
  Company Number: DE-002147023-NVSC2022DE156387

PATIENT
  Age: 34 Year
  Sex: Male

DRUGS (20)
  1. AMOXICILLIN\CLAVULANIC ACID [Suspect]
     Active Substance: AMOXICILLIN\CLAVULANIC ACID
     Indication: Tuberculosis
     Dosage: 1000 MG, QD
     Route: 065
  2. AMOXICILLIN\CLAVULANIC ACID [Suspect]
     Active Substance: AMOXICILLIN\CLAVULANIC ACID
     Dosage: 7.2 G, QD
     Route: 065
  3. AMOXICILLIN\CLAVULANIC ACID [Suspect]
     Active Substance: AMOXICILLIN\CLAVULANIC ACID
     Dosage: UNK
     Route: 065
     Dates: end: 202012
  4. AMINOSALICYLIC ACID [Suspect]
     Active Substance: AMINOSALICYLIC ACID
     Indication: Tuberculosis
     Dosage: UNK
     Route: 065
     Dates: end: 202012
  5. BEDAQUILINE [Suspect]
     Active Substance: BEDAQUILINE
     Dosage: 300 MG, TIW
     Route: 065
     Dates: end: 202012
  6. BEDAQUILINE [Suspect]
     Active Substance: BEDAQUILINE
     Dosage: 400 MG, TIW
     Route: 065
  7. BEDAQUILINE [Suspect]
     Active Substance: BEDAQUILINE
     Indication: Tuberculosis
     Dosage: UNK (STANDARD DOSE)
     Route: 065
  8. CLOFAZIMINE [Suspect]
     Active Substance: CLOFAZIMINE
     Indication: Product used for unknown indication
     Route: 065
  9. CLOFAZIMINE [Suspect]
     Active Substance: CLOFAZIMINE
     Indication: Product used for unknown indication
     Route: 065
  10. DELAMANID [Suspect]
     Active Substance: DELAMANID
     Dosage: 200 MG
     Route: 065
     Dates: end: 202012
  11. DELAMANID [Suspect]
     Active Substance: DELAMANID
     Indication: Tuberculosis
     Dosage: UNK (STANDARD DOSE)
     Route: 065
  12. MEROPENEM [Suspect]
     Active Substance: MEROPENEM
     Dosage: 9.6 G, QD
     Route: 065
     Dates: end: 202012
  13. MEROPENEM [Suspect]
     Active Substance: MEROPENEM
     Indication: Tuberculosis
     Dosage: UNK (STANDARD DOSE)
     Route: 065
  14. MOXIFLOXACIN [Suspect]
     Active Substance: MOXIFLOXACIN
     Dosage: 1600 MG, UNKNOWN
     Route: 065
     Dates: end: 202012
  15. MOXIFLOXACIN [Suspect]
     Active Substance: MOXIFLOXACIN
     Indication: Tuberculosis
     Dosage: 800 MG, QD
     Route: 065
  16. MOXIFLOXACIN [Suspect]
     Active Substance: MOXIFLOXACIN
     Dosage: UNK
     Route: 065
  17. PRETOMANID [Suspect]
     Active Substance: PRETOMANID
     Indication: Tuberculosis
     Dosage: UNK
     Route: 065
     Dates: end: 202012
  18. TERIZIDONE [Suspect]
     Active Substance: TERIZIDONE
     Dosage: 1000 MG, UNKNOWN
     Route: 065
     Dates: end: 202012
  19. TERIZIDONE [Suspect]
     Active Substance: TERIZIDONE
     Indication: Tuberculosis
     Dosage: UNK (STANDARD DOSE)
     Route: 065
  20. VERAPAMIL [Suspect]
     Active Substance: VERAPAMIL HYDROCHLORIDE
     Indication: Tuberculosis
     Dosage: UNK
     Route: 065
     Dates: end: 202012

REACTIONS (4)
  - Drug ineffective [Recovered/Resolved]
  - Electrocardiogram QT prolonged [Unknown]
  - Multiple-drug resistance [Unknown]
  - Product use in unapproved indication [Unknown]
